FAERS Safety Report 4483232-6 (Version None)
Quarter: 2004Q3

REPORT INFORMATION
  Report Type: 
  Country: None (occurrence: None)
  Receive Date: 20040921
  Receipt Date: 20040622
  Transmission Date: 20050211
  Serious: Yes (Hospitalization)
  Sender: FDA-Public Use
  Company Number: 163-20785-04060630

PATIENT
  Age: 63 Year
  Sex: Male
  Weight: 100.6985 kg

DRUGS (12)
  1. THALOMID [Suspect]
     Indication: SMALL CELL LUNG CANCER STAGE UNSPECIFIED
     Dosage: 200 MG, QD HS, ORAL
     Route: 048
     Dates: start: 20040614, end: 20040616
  2. ACCUPRIL [Concomitant]
  3. NORVASC [Concomitant]
  4. TOPROL-XL [Concomitant]
  5. ISOSORBIDE (ISOSORBIDE) [Concomitant]
  6. ZETIA [Concomitant]
  7. SYNTHROID [Concomitant]
  8. AZEMET (DOLASETRON MESILATE) [Concomitant]
  9. MICRO-K (POTASSIUM CHLORIDE) [Concomitant]
  10. ASPIRIN [Concomitant]
  11. HYDROCHLOROTHIAZIDE [Concomitant]
  12. IBUPROFEN [Concomitant]

REACTIONS (3)
  - DYSARTHRIA [None]
  - HEMIPARESIS [None]
  - TRANSIENT ISCHAEMIC ATTACK [None]
